FAERS Safety Report 6983669-7 (Version None)
Quarter: 2010Q3

REPORT INFORMATION
  Report Type: 
  Country: None (occurrence: None)
  Receive Date: 20100914
  Receipt Date: 20090128
  Transmission Date: 20110219
  Serious: No
  Sender: FDA-Public Use
  Company Number: US-WYE-H06907208

PATIENT
  Sex: Female
  Weight: 85.5 kg

DRUGS (1)
  1. TYGACIL [Suspect]
     Indication: PYREXIA
     Route: 042
     Dates: start: 20081117, end: 20081118

REACTIONS (1)
  - INFUSION SITE PAIN [None]
